FAERS Safety Report 9817518 (Version 1)
Quarter: 2014Q1

REPORT INFORMATION
  Report Type: Spontaneous
  Country: HR (occurrence: HR)
  Receive Date: 20140115
  Receipt Date: 20140115
  Transmission Date: 20141002
  Serious: Yes (Other)
  Sender: FDA-Public Use
  Company Number: HR-BRISTOL-MYERS SQUIBB COMPANY-19991538

PATIENT
  Age: 57 Year
  Sex: Male

DRUGS (3)
  1. GLUCOPHAGE TABS [Suspect]
     Indication: TYPE 2 DIABETES MELLITUS
     Route: 048
     Dates: start: 200909
  2. SORTIS [Concomitant]
     Indication: HYPERLIPIDAEMIA
     Route: 048
     Dates: start: 200909
  3. AMARYL [Concomitant]
     Indication: TYPE 2 DIABETES MELLITUS
     Route: 048
     Dates: start: 200909

REACTIONS (2)
  - Gastrointestinal motility disorder [Unknown]
  - Faeces hard [Unknown]
